FAERS Safety Report 9988801 (Version 1)
Quarter: 2013Q4

REPORT INFORMATION
  Report Type: Spontaneous
  Country: US (occurrence: None)
  Receive Date: 20131018
  Receipt Date: 20131018
  Transmission Date: 20140711
  Serious: Yes (Other)
  Sender: FDA-Public Use
  Company Number: ADR-2013-01277

PATIENT
  Sex: Male

DRUGS (6)
  1. BACLOFEN [Suspect]
     Indication: MUSCLE SPASTICITY
  2. BENADRYL TRILEPTAL [Concomitant]
  3. CITALOPRAM [Concomitant]
  4. RISPERDAL [Concomitant]
  5. NEXIUM [Concomitant]
  6. DESIPRAMINE [Concomitant]

REACTIONS (2)
  - Drug withdrawal syndrome [None]
  - Irritability [None]
